FAERS Safety Report 9785063 (Version 1)
Quarter: 2013Q4

REPORT INFORMATION
  Report Type: Spontaneous
  Country: US (occurrence: US)
  Receive Date: 20131227
  Receipt Date: 20131227
  Transmission Date: 20140711
  Serious: Yes (Hospitalization)
  Sender: FDA-Public Use
  Company Number: US-ASTRAZENECA-2013SE92775

PATIENT
  Age: 71 Year
  Sex: Male

DRUGS (14)
  1. SYMBICORT [Suspect]
     Indication: CHRONIC OBSTRUCTIVE PULMONARY DISEASE
     Dosage: 160/4.5, FREQUENCY UNKNOWN
     Route: 055
  2. CRESTOR [Suspect]
     Route: 048
  3. TORSEMIDE [Concomitant]
     Indication: DIURETIC THERAPY
  4. ZAROXOLYN [Concomitant]
     Indication: DIURETIC THERAPY
  5. LANITS [Concomitant]
  6. NOVOLOG [Concomitant]
  7. POTASSIUM [Concomitant]
  8. EFFEXOR [Concomitant]
  9. ASPIRIN [Concomitant]
  10. HYDRALAZINE [Concomitant]
  11. XANAFLEX [Concomitant]
  12. NEURONTIN [Concomitant]
  13. PROTONIX [Concomitant]
  14. SPIRIVA [Concomitant]
     Indication: CHRONIC OBSTRUCTIVE PULMONARY DISEASE

REACTIONS (5)
  - Cardiac failure congestive [Unknown]
  - Asthenia [Unknown]
  - Electrolyte imbalance [Unknown]
  - Atrial fibrillation [Unknown]
  - Chronic obstructive pulmonary disease [Unknown]
